FAERS Safety Report 6661387-2 (Version None)
Quarter: 2010Q1

REPORT INFORMATION
  Report Type: 
  Country: None (occurrence: None)
  Receive Date: 20100331
  Receipt Date: 20100324
  Transmission Date: 20100710
  Serious: Yes (Other)
  Sender: FDA-Public Use
  Company Number: PHHY2010TR18416

PATIENT
  Sex: Female

DRUGS (2)
  1. EXFORGE [Suspect]
     Indication: HYPERTENSION
     Dosage: 160/10 MG, UNK
     Route: 048
  2. FLUDEX - SLOW RELEASE [Concomitant]

REACTIONS (1)
  - AMENORRHOEA [None]
